FAERS Safety Report 9369493 (Version 1)
Quarter: 2013Q2

REPORT INFORMATION
  Report Type: Spontaneous
  Country: US (occurrence: None)
  Receive Date: 20130625
  Receipt Date: 20130625
  Transmission Date: 20140414
  Serious: Yes (Hospitalization, Other)
  Sender: FDA-Public Use
  Company Number: None

PATIENT
  Age: 50 Year
  Sex: Male
  Weight: 78.93 kg

DRUGS (9)
  1. LEVOFLOXACIN [Suspect]
     Indication: COUGH
     Dosage: QUANTITY 10
     Route: 048
     Dates: start: 20130301, end: 20130305
  2. LEVOFLOXACIN [Suspect]
     Indication: THROAT IRRITATION
     Dosage: QUANTITY 10
     Route: 048
     Dates: start: 20130301, end: 20130305
  3. LEVOFLOXACIN [Suspect]
     Indication: URINARY TRACT INFECTION
     Dosage: QUANTITY 10
     Route: 048
     Dates: start: 20130301, end: 20130305
  4. NATURE THROID [Concomitant]
  5. VITAMIN C [Concomitant]
  6. DHEA [Concomitant]
  7. SAW PALMETTO [Concomitant]
  8. MULTI VITAMIN [Concomitant]
  9. MAGNESIUM [Concomitant]

REACTIONS (6)
  - Palpitations [None]
  - Fatigue [None]
  - Anxiety [None]
  - Paraesthesia [None]
  - Tremor [None]
  - Confusional state [None]
